FAERS Safety Report 8866065 (Version 2)
Quarter: 2012Q4

REPORT INFORMATION
  Report Type: 
  Country: US (occurrence: US)
  Receive Date: 20121025
  Receipt Date: 20121116
  Transmission Date: 20130627
  Serious: Yes (Death, Hospitalization, Other)
  Sender: FDA-Public Use
  Company Number: US-JNJFOC-20121013386

PATIENT
  Sex: Male

DRUGS (10)
  1. XARELTO [Suspect]
     Indication: CEREBROVASCULAR ACCIDENT PROPHYLAXIS
     Route: 048
     Dates: start: 201205
  2. XARELTO [Suspect]
     Indication: ATRIAL FIBRILLATION
     Route: 048
     Dates: start: 201205
  3. SYNTHROID [Concomitant]
  4. LISINOPRIL [Concomitant]
  5. LOPRESSOR [Concomitant]
  6. METFORMIN [Concomitant]
  7. BENICAR [Concomitant]
  8. LIPITOR [Concomitant]
  9. FLOMAX [Concomitant]
  10. CALCIUM [Concomitant]

REACTIONS (1)
  - Haemorrhage intracranial [Fatal]
